FAERS Safety Report 13241943 (Version 1)
Quarter: 2017Q1

REPORT INFORMATION
  Report Type: Spontaneous
  Country: US (occurrence: US)
  Receive Date: 20170216
  Receipt Date: 20170216
  Transmission Date: 20170428
  Serious: Yes (Hospitalization)
  Sender: FDA-Public Use
  Company Number: None

PATIENT
  Age: 64 Year
  Sex: Male
  Weight: 66.99 kg

DRUGS (3)
  1. AVASTIN [Suspect]
     Active Substance: BEVACIZUMAB
     Route: 042
     Dates: start: 20151201, end: 20160101
  2. RADIATION THERAPY [Concomitant]
     Active Substance: RADIATION THERAPY
  3. TEMODAR [Suspect]
     Active Substance: TEMOZOLOMIDE
     Indication: GLIOBLASTOMA MULTIFORME
     Dosage: 130MG DAILY DURING XRT ORAL
     Route: 048
     Dates: start: 20151201, end: 20160114

REACTIONS (8)
  - Hypoxia [None]
  - Dyspnoea [None]
  - Acute respiratory distress syndrome [None]
  - Acute kidney injury [None]
  - Pneumonitis [None]
  - Cough [None]
  - Musculoskeletal chest pain [None]
  - Respiratory distress [None]

NARRATIVE: CASE EVENT DATE: 20160126
